FAERS Safety Report 5883472-5 (Version None)
Quarter: 2008Q3

REPORT INFORMATION
  Report Type: 
  Country: None (occurrence: None)
  Receive Date: 20080915
  Receipt Date: 20080904
  Transmission Date: 20090109
  Serious: Yes (Hospitalization)
  Sender: FDA-Public Use
  Company Number: US-ROCHE-584985

PATIENT
  Sex: Female

DRUGS (1)
  1. ISOTRETINOIN [Suspect]
     Indication: DRUG USE FOR UNKNOWN INDICATION
     Dosage: DATE OF LAST DOSE PRIOR TO THE EVNET WAS REPORTED AS 1987.
     Route: 065
     Dates: end: 19870101

REACTIONS (2)
  - CEREBROVASCULAR ACCIDENT [None]
  - COMA [None]
